FAERS Safety Report 7409211-4 (Version None)
Quarter: 2011Q2

REPORT INFORMATION
  Report Type: 
  Country: None (occurrence: None)
  Receive Date: 20110412
  Receipt Date: 20110330
  Transmission Date: 20111010
  Serious: Yes (Hospitalization, Other)
  Sender: FDA-Public Use
  Company Number: US-ELI_LILLY_AND_COMPANY-US200911000282

PATIENT
  Sex: Female

DRUGS (9)
  1. FORTEO [Suspect]
     Indication: OSTEOPOROSIS
     Dosage: 20 UG, DAILY (1/D)
     Dates: start: 20091001
  2. ALTACE [Concomitant]
  3. ALDACTONE [Concomitant]
  4. ASPIRIN [Concomitant]
  5. FORTEO [Suspect]
     Dosage: 20 UG, DAILY (1/D)
  6. LASIX [Concomitant]
  7. DIGOXIN [Concomitant]
  8. FORTEO [Suspect]
     Dosage: 20 UG, QD
  9. COREG [Concomitant]

REACTIONS (5)
  - CARDIAC FAILURE CONGESTIVE [None]
  - BACK PAIN [None]
  - DIARRHOEA [None]
  - INJECTION SITE HAEMATOMA [None]
  - FEELING ABNORMAL [None]
